FAERS Safety Report 10207733 (Version 1)
Quarter: 2014Q2

REPORT INFORMATION
  Report Type: Spontaneous
  Country: US (occurrence: None)
  Receive Date: 20140529
  Receipt Date: 20140529
  Transmission Date: 20141212
  Serious: Yes (Disabling)
  Sender: FDA-Public Use
  Company Number: None

PATIENT
  Age: 72 Year
  Sex: Female
  Weight: 81.65 kg

DRUGS (10)
  1. LEVAQUIN [Suspect]
     Indication: BRONCHITIS
     Dosage: 1 TAB
     Route: 048
     Dates: start: 20140517, end: 20140527
  2. PREDNISONE [Suspect]
     Indication: BRONCHITIS
     Dosage: 2 TABS
     Route: 048
     Dates: start: 20140517, end: 20140527
  3. ALBUTEROL INHALER [Concomitant]
  4. OMEPRAZOLE [Concomitant]
  5. AMITRIPTYLINE [Concomitant]
  6. VENLAFAXINE [Concomitant]
  7. ALPRAZOLAM [Concomitant]
  8. PREDNISONE [Concomitant]
  9. MYCOPHENOLATE [Concomitant]
  10. NAPROXEN [Concomitant]

REACTIONS (3)
  - Pain in extremity [None]
  - Arthropathy [None]
  - Gait disturbance [None]
